FAERS Safety Report 4471734-8 (Version None)
Quarter: 2004Q4

REPORT INFORMATION
  Report Type: 
  Country: None (occurrence: None)
  Receive Date: 20041012
  Receipt Date: 20041001
  Transmission Date: 20050328
  Serious: Yes (Other)
  Sender: FDA-Public Use
  Company Number: FR-ROCHE-382418

PATIENT
  Age: 30 Year
  Sex: Female

DRUGS (1)
  1. LARIAM [Suspect]
     Indication: MALARIA PROPHYLAXIS
     Route: 065
     Dates: end: 20040815

REACTIONS (6)
  - ABDOMINAL PAIN UPPER [None]
  - FATIGUE [None]
  - FULL BLOOD COUNT ABNORMAL [None]
  - LYMPHOCYTE COUNT INCREASED [None]
  - NAUSEA [None]
  - PHARYNGOLARYNGEAL PAIN [None]
